FAERS Safety Report 8995887 (Version 1)
Quarter: 2013Q1

REPORT INFORMATION
  Report Type: Spontaneous
  Country: GB (occurrence: GB)
  Receive Date: 20130103
  Receipt Date: 20130103
  Transmission Date: 20140127
  Serious: Yes (Hospitalization)
  Sender: FDA-Public Use
  Company Number: GB-WATSON-2012-19043

PATIENT
  Age: 46 Year
  Sex: Female

DRUGS (1)
  1. TAMOXIFEN CITRATE (UNKNOWN) [Suspect]
     Indication: CANCER HORMONAL THERAPY
     Dosage: UNK
     Route: 065

REACTIONS (4)
  - Venous thrombosis [Recovered/Resolved]
  - Intestinal infarction [Recovered/Resolved]
  - Dyspepsia [Recovered/Resolved]
  - Mesenteric vein thrombosis [None]
